FAERS Safety Report 6053329-8 (Version None)
Quarter: 2009Q1

REPORT INFORMATION
  Report Type: 
  Country: None (occurrence: None)
  Receive Date: 20090127
  Receipt Date: 20090123
  Transmission Date: 20090719
  Serious: Yes (Life-Threatening)
  Sender: FDA-Public Use
  Company Number: B0550202A

PATIENT
  Age: 12 Year
  Sex: Female

DRUGS (2)
  1. CLAMOXYL [Suspect]
     Route: 048
     Dates: start: 20081024, end: 20081024
  2. SURGAM [Suspect]
     Route: 048
     Dates: start: 20081024, end: 20081024

REACTIONS (3)
  - ANAPHYLACTIC SHOCK [None]
  - ASTHMATIC CRISIS [None]
  - URTICARIA [None]
